FAERS Safety Report 5887565-8 (Version None)
Quarter: 2008Q3

REPORT INFORMATION
  Report Type: 
  Country: None (occurrence: None)
  Receive Date: 20080918
  Receipt Date: 20080912
  Transmission Date: 20090109
  Serious: Yes (Other)
  Sender: FDA-Public Use
  Company Number: PHHY2008BR21183

PATIENT
  Age: 27 Year
  Sex: Female
  Weight: 78 kg

DRUGS (1)
  1. TEGRETOL [Suspect]
     Indication: DEMENTIA
     Dosage: 200 MG

REACTIONS (5)
  - DRY MOUTH [None]
  - DYSKINESIA [None]
  - HYPOAESTHESIA ORAL [None]
  - LIP DRY [None]
  - LIP SWELLING [None]
